FAERS Safety Report 16825564 (Version 2)
Quarter: 2019Q4

REPORT INFORMATION
  Report Type: Spontaneous
  Country: US (occurrence: US)
  Receive Date: 20190919
  Receipt Date: 20191122
  Transmission Date: 20200122
  Serious: Yes (Other)
  Sender: FDA-Public Use
  Company Number: US-BIOGEN-2019BI00783781

PATIENT
  Age: 35 Year
  Sex: Male

DRUGS (1)
  1. TECFIDERA [Suspect]
     Active Substance: DIMETHYL FUMARATE
     Indication: MULTIPLE SCLEROSIS
     Dosage: MAINTENANCE DOSE
     Route: 048
     Dates: start: 201808

REACTIONS (10)
  - Neutrophil count decreased [Unknown]
  - Blood alkaline phosphatase decreased [Unknown]
  - T-lymphocyte count decreased [Unknown]
  - CD8 lymphocytes increased [Unknown]
  - Latent tuberculosis [Unknown]
  - Carbon dioxide decreased [Unknown]
  - White blood cell count decreased [Unknown]
  - Alanine aminotransferase increased [Unknown]
  - CD4 lymphocytes decreased [Unknown]
  - Albumin globulin ratio increased [Unknown]

NARRATIVE: CASE EVENT DATE: 20190622
